FAERS Safety Report 10685590 (Version 1)
Quarter: 2014Q4

REPORT INFORMATION
  Report Type: Spontaneous
  Country: US (occurrence: US)
  Receive Date: 20141231
  Receipt Date: 20141231
  Transmission Date: 20150529
  Serious: No
  Sender: FDA-Public Use
  Company Number: US-TARO-2014P1003824

PATIENT
  Age: 71 Year
  Sex: Male
  Weight: 89.81 kg

DRUGS (4)
  1. HYDROCORTISONE CREAM USP 2.5% [Suspect]
     Active Substance: HYDROCORTISONE
     Indication: RASH
     Dosage: QD
     Route: 061
     Dates: start: 20140423, end: 2014
  2. PLAVIX [Concomitant]
     Active Substance: CLOPIDOGREL BISULFATE
  3. ATENOLOL. [Concomitant]
     Active Substance: ATENOLOL
  4. UNSPECIFIED HEART MEDICATIONS [Concomitant]

REACTIONS (4)
  - Back pain [Recovering/Resolving]
  - Gait disturbance [Recovered/Resolved]
  - Musculoskeletal pain [Recovering/Resolving]
  - Application site pain [Recovered/Resolved]

NARRATIVE: CASE EVENT DATE: 20140424
